FAERS Safety Report 6594126-4 (Version None)
Quarter: 2010Q1

REPORT INFORMATION
  Report Type: 
  Country: None (occurrence: None)
  Receive Date: 20100222
  Receipt Date: 20100210
  Transmission Date: 20100710
  Serious: Yes (Other)
  Sender: FDA-Public Use
  Company Number: MY-PFIZER INC-2010017944

PATIENT

DRUGS (1)
  1. ERAXIS [Suspect]
     Indication: SYSTEMIC CANDIDA

REACTIONS (1)
  - RED MAN SYNDROME [None]
